FAERS Safety Report 7611945-3 (Version None)
Quarter: 2011Q3

REPORT INFORMATION
  Report Type: 
  Country: None (occurrence: None)
  Receive Date: 20110715
  Receipt Date: 20110712
  Transmission Date: 20111222
  Serious: Yes (Death, Other)
  Sender: FDA-Public Use
  Company Number: JP-SANOFI-AVENTIS-2011SA018178

PATIENT
  Age: 69 Year
  Sex: Male
  Weight: 52 kg

DRUGS (5)
  1. OXALIPLATIN [Suspect]
     Indication: LARGE INTESTINE CARCINOMA
     Route: 041
     Dates: start: 20110308, end: 20110308
  2. BOSMIN [Concomitant]
     Indication: ASPIRATION
     Route: 042
     Dates: start: 20110324, end: 20110324
  3. SODIUM BICARBONATE [Concomitant]
     Indication: ASPIRATION
     Route: 042
     Dates: start: 20110324, end: 20110324
  4. XELODA [Suspect]
     Indication: LARGE INTESTINE CARCINOMA
     Route: 048
     Dates: start: 20110308, end: 20110320
  5. XELODA [Suspect]
     Indication: RECTAL CANCER
     Route: 048
     Dates: start: 20110308, end: 20110320

REACTIONS (18)
  - PLATELET COUNT DECREASED [None]
  - PANCYTOPENIA [None]
  - DECREASED APPETITE [None]
  - ASPIRATION [None]
  - NEUTROPHIL COUNT DECREASED [None]
  - WHITE BLOOD CELL COUNT DECREASED [None]
  - ENTEROCOLITIS [None]
  - FEBRILE NEUTROPENIA [None]
  - MALAISE [None]
  - DYSPNOEA [None]
  - LOSS OF CONSCIOUSNESS [None]
  - UNEVALUABLE EVENT [None]
  - DIARRHOEA [None]
  - RESPIRATORY ARREST [None]
  - DEHYDRATION [None]
  - NO THERAPEUTIC RESPONSE [None]
  - ALTERED STATE OF CONSCIOUSNESS [None]
  - PYREXIA [None]
